FAERS Safety Report 8104049-7 (Version None)
Quarter: 2012Q1

REPORT INFORMATION
  Report Type: 
  Country: None (occurrence: None)
  Receive Date: 20120201
  Receipt Date: 20120125
  Transmission Date: 20120608
  Serious: No
  Sender: FDA-Public Use
  Company Number: US-PFIZER INC-2012021943

PATIENT
  Sex: Female
  Weight: 68.9 kg

DRUGS (11)
  1. NEXIUM [Concomitant]
     Indication: GASTRIC DISORDER
     Dosage: 40 MG, 2X/DAY
  2. CARBIDOPA + LEVODOPA [Suspect]
     Indication: BRAIN NEOPLASM
  3. NEURONTIN [Concomitant]
     Indication: SCOLIOSIS
     Dosage: 300 MG, 4X/DAY
  4. ZYRTEC [Concomitant]
     Indication: HYPERSENSITIVITY
     Dosage: 10 MG, DAILY
  5. PREMARIN [Suspect]
     Dosage: 1 G, 2X/WEEK
  6. PREMARIN [Suspect]
     Dosage: UNK
  7. PREMARIN [Suspect]
     Indication: BLADDER PROLAPSE
     Dosage: 2 G, 2X/WEEK
  8. PREMARIN [Suspect]
     Indication: MEDICAL DEVICE IMPLANTATION
     Dosage: UNK, 2X/WEEK
  9. CARBIDOPA + LEVODOPA [Suspect]
     Indication: TREMOR
     Dosage: 25-100 MG 3X/DAY
  10. FUROSEMIDE [Concomitant]
     Indication: OEDEMA PERIPHERAL
     Dosage: 40 MG, DAILY
  11. CELEBREX [Concomitant]
     Indication: BONE DISORDER
     Dosage: 200 MG, DAILY

REACTIONS (2)
  - INCORRECT DOSE ADMINISTERED [None]
  - ABDOMINAL DISCOMFORT [None]
